FAERS Safety Report 21190299 (Version 5)
Quarter: 2022Q4

REPORT INFORMATION
  Report Type: Report from Study
  Country: US (occurrence: US)
  Receive Date: 20220809
  Receipt Date: 20221116
  Transmission Date: 20230113
  Serious: No
  Sender: FDA-Public Use
  Company Number: US-BIOVITRUM-2022US08073

PATIENT
  Sex: Female

DRUGS (2)
  1. KINERET [Suspect]
     Active Substance: ANAKINRA
     Indication: Rheumatoid arthritis
     Dates: start: 20201109
  2. KINERET [Suspect]
     Active Substance: ANAKINRA
     Dates: start: 20201112

REACTIONS (7)
  - Pain [Unknown]
  - Myalgia [Unknown]
  - Unevaluable event [Unknown]
  - Blood glucose increased [Unknown]
  - Headache [Unknown]
  - Product use issue [Unknown]
  - Product dose omission issue [Unknown]
